FAERS Safety Report 7310914-0 (Version None)
Quarter: 2011Q1

REPORT INFORMATION
  Report Type: 
  Country: None (occurrence: None)
  Receive Date: 20110224
  Receipt Date: 20110215
  Transmission Date: 20110831
  Serious: Yes (Death)
  Sender: FDA-Public Use
  Company Number: US-JNJFOC-20110200841

PATIENT
  Sex: Male
  Weight: 90.72 kg

DRUGS (5)
  1. OXYCODONE [Concomitant]
     Route: 065
  2. CARISOPRODOL [Concomitant]
     Route: 065
  3. DURAGESIC-50 [Suspect]
     Indication: PAIN
     Route: 062
  4. OXYMORPHONE [Concomitant]
     Route: 065
  5. FLUOXETINE [Concomitant]
     Route: 065

REACTIONS (1)
  - OPIATE TOXICITY [None]
